FAERS Safety Report 4611921-9 (Version None)
Quarter: 2005Q1

REPORT INFORMATION
  Report Type: 
  Country: None (occurrence: None)
  Receive Date: 20050308
  Receipt Date: 20050202
  Transmission Date: 20050727
  Serious: Yes (Hospitalization)
  Sender: FDA-Public Use
  Company Number: 2005UW00640

PATIENT
  Age: 78 Year
  Sex: Female
  Weight: 59.874 kg

DRUGS (9)
  1. CRESTOR [Suspect]
     Indication: BLOOD CHOLESTEROL INCREASED
     Dosage: 10 MG PO
     Route: 048
     Dates: end: 20050113
  2. WARFARIN SODIUM [Concomitant]
  3. DIGITEK [Concomitant]
  4. DILTIAZEM [Concomitant]
  5. BENICAR [Concomitant]
  6. LEXAPRO [Concomitant]
  7. METFORMIN [Concomitant]
  8. ARIMIDEX [Concomitant]
  9. CITRACAL [Concomitant]

REACTIONS (1)
  - HYPERTENSION [None]
